FAERS Safety Report 5040176-9 (Version None)
Quarter: 2006Q2

REPORT INFORMATION
  Report Type: 
  Country: None (occurrence: None)
  Receive Date: 20060630
  Receipt Date: 20060623
  Transmission Date: 20061013
  Serious: Yes (Hospitalization)
  Sender: FDA-Public Use
  Company Number: FR-AVENTIS-200612285FR

PATIENT
  Age: 86 Year
  Sex: Male

DRUGS (2)
  1. DAONIL [Suspect]
     Indication: DIABETES MELLITUS NON-INSULIN-DEPENDENT
     Dosage: DOSE: UNKNOWN
     Route: 048
     Dates: start: 19960101, end: 20060601
  2. BEFIZAL [Suspect]
     Dosage: DOSE: UNKNOWN
     Dates: start: 20010101, end: 20060601

REACTIONS (3)
  - DYSPNOEA [None]
  - EOSINOPHILIA [None]
  - PNEUMONITIS [None]
